FAERS Safety Report 12301978 (Version 1)
Quarter: 2016Q2

REPORT INFORMATION
  Report Type: Spontaneous
  Country: GR (occurrence: GR)
  Receive Date: 20160425
  Receipt Date: 20160425
  Transmission Date: 20160815
  Serious: Yes (Life-Threatening)
  Sender: FDA-Public Use
  Company Number: GR-PFIZER INC-2016227356

PATIENT
  Age: 54 Year
  Sex: Female
  Weight: 75 kg

DRUGS (2)
  1. ZANTAC [Concomitant]
     Active Substance: RANITIDINE HYDROCHLORIDE
     Dosage: 150 MG, 2X/DAY
     Route: 048
     Dates: start: 20160412, end: 20160412
  2. MEDROL [Suspect]
     Active Substance: METHYLPREDNISOLONE
     Indication: URTICARIAL VASCULITIS
     Dosage: 16 MG, 1 DOSAGE FORM IN THE MORNING AND 0.5 DOSAGE FORM IN THE EVENING
     Route: 048
     Dates: start: 20160412, end: 20160412

REACTIONS (3)
  - Choking sensation [Recovered/Resolved]
  - Dizziness [Recovered/Resolved]
  - Palpitations [Recovered/Resolved]

NARRATIVE: CASE EVENT DATE: 20160412
